FAERS Safety Report 15640079 (Version 1)
Quarter: 2018Q4

REPORT INFORMATION
  Report Type: Spontaneous
  Country: US (occurrence: US)
  Receive Date: 20181120
  Receipt Date: 20181120
  Transmission Date: 20190205
  Serious: No
  Sender: FDA-Public Use
  Company Number: US-PFIZER INC-2018463109

PATIENT
  Sex: Male

DRUGS (1)
  1. XANAX [Suspect]
     Active Substance: ALPRAZOLAM
     Indication: ANXIETY
     Dosage: 3 MG, DAILY(1MG 3 UNITS/DAY FOR 12 DOSE OF 3 MG)

REACTIONS (3)
  - Dysarthria [Unknown]
  - Dyspnoea [Unknown]
  - Drug ineffective [Unknown]
